FAERS Safety Report 10126313 (Version 2)
Quarter: 2014Q2

REPORT INFORMATION
  Report Type: Report from Study
  Country: AU (occurrence: AU)
  Receive Date: 20140427
  Receipt Date: 20140520
  Transmission Date: 20141212
  Serious: Yes (Hospitalization)
  Sender: FDA-Public Use
  Company Number: AU-BRISTOL-MYERS SQUIBB COMPANY-20655312

PATIENT
  Age: 32 Year
  Sex: Male

DRUGS (21)
  1. ORENCIA [Suspect]
     Indication: RHEUMATOID ARTHRITIS
     Route: 042
     Dates: start: 20100820
  2. METHOTREXATE [Concomitant]
  3. FOLIC ACID [Concomitant]
     Dosage: 1DF: 5 UNIT NOS
  4. PREDNISONE [Concomitant]
     Dosage: 1DF: 5 UNIT NOS
  5. OXYCONTIN [Concomitant]
  6. TRAMADOL [Concomitant]
  7. ENDONE [Concomitant]
  8. PANADOL [Concomitant]
     Dosage: OSTEO
  9. SULFASALAZINE [Concomitant]
  10. MINOCYCLINE [Concomitant]
  11. VITAMIN D [Concomitant]
  12. FISH OIL [Concomitant]
  13. IRON TABLETS [Concomitant]
  14. CALTRATE [Concomitant]
  15. SOMAC [Concomitant]
  16. CEFALEXIN [Concomitant]
  17. MOBIC [Concomitant]
  18. EDRONAX [Concomitant]
  19. PAROXETINE [Concomitant]
  20. AMLODIPINE [Concomitant]
  21. PERINDOPRIL [Concomitant]
     Dosage: 1DF: 4/125MG?INDAPOMIDE

REACTIONS (1)
  - Arthropathy [Unknown]
